FAERS Safety Report 6550104-2 (Version None)
Quarter: 2010Q1

REPORT INFORMATION
  Report Type: 
  Country: None (occurrence: None)
  Receive Date: 20100125
  Receipt Date: 20100114
  Transmission Date: 20100710
  Serious: Yes (Death)
  Sender: FDA-Public Use
  Company Number: KR-PFIZER INC-2009284618

PATIENT
  Age: 27 Year
  Sex: Male
  Weight: 55 kg

DRUGS (19)
  1. VORICONAZOLE [Suspect]
     Indication: ASPERGILLOSIS
     Dosage: 330 MG, 2X/DAY
     Route: 042
     Dates: start: 20050817, end: 20050817
  2. VORICONAZOLE [Suspect]
     Dosage: 220 MG, 2X/DAY
     Route: 042
     Dates: start: 20050818, end: 20050908
  3. VORICONAZOLE [Suspect]
     Dosage: 200 MG, 2X/DAY
     Route: 042
     Dates: start: 20050909, end: 20051028
  4. VORICONAZOLE [Suspect]
     Dosage: 300 MG, 2X/DAY
     Route: 042
     Dates: start: 20060201, end: 20060201
  5. VORICONAZOLE [Suspect]
     Dosage: 200 MG, 2X/DAY
     Route: 042
     Dates: start: 20060202, end: 20060302
  6. METHYLPREDNISOLONE [Concomitant]
     Indication: IMMUNOSUPPRESSANT DRUG THERAPY
     Dosage: 125 MG, 1X/DAY
     Route: 042
     Dates: start: 20050315, end: 20060302
  7. IMIPENEM [Concomitant]
     Indication: ABSCESS
     Dosage: 500 MG, 4X/DAY
     Route: 042
     Dates: start: 20060206, end: 20060223
  8. VALPROATE SODIUM [Concomitant]
     Indication: CONVULSION
     Dosage: 400 MG, 4X/DAY
     Route: 042
     Dates: start: 20060128, end: 20060302
  9. TAZOCIN [Concomitant]
  10. MEROPENEM [Concomitant]
  11. CYCLOSPORINE [Concomitant]
  12. PREDNISOLONE [Concomitant]
  13. TRIMETHOPRIM [Concomitant]
  14. ACYCLOVIR [Concomitant]
  15. CIPROFLOXACIN [Concomitant]
  16. CEFAZOLIN [Concomitant]
  17. CEFTAZIDIME [Concomitant]
  18. VALPROATE SODIUM [Concomitant]
  19. METRONIDAZOLE [Concomitant]

REACTIONS (10)
  - BLOOD UREA INCREASED [None]
  - CENTRAL PAIN SYNDROME [None]
  - CONVULSION [None]
  - GRAFT VERSUS HOST DISEASE [None]
  - HYPOKALAEMIA [None]
  - PLATELET COUNT DECREASED [None]
  - RASH [None]
  - RASH VESICULAR [None]
  - TREATMENT FAILURE [None]
  - VISUAL ACUITY REDUCED [None]
